FAERS Safety Report 10613610 (Version 2)
Quarter: 2014Q4

REPORT INFORMATION
  Report Type: Spontaneous
  Country: JP (occurrence: JP)
  Receive Date: 20141128
  Receipt Date: 20141128
  Transmission Date: 20150529
  Serious: Yes (Other)
  Sender: FDA-Public Use
  Company Number: PHHY2014JP143808

PATIENT
  Age: 60 Year
  Sex: Male

DRUGS (5)
  1. BETAMETHASONE [Concomitant]
     Active Substance: BETAMETHASONE
     Indication: METASTASES TO BONE
     Route: 042
  2. ZOLEDRONIC ACID [Suspect]
     Active Substance: ZOLEDRONIC ACID
     Indication: METASTASES TO BONE
     Route: 042
  3. KETAMINE [Concomitant]
     Active Substance: KETAMINE
     Dosage: 50 MG, QD
     Route: 065
  4. FENTANYL. [Concomitant]
     Active Substance: FENTANYL
     Indication: METASTASES TO BONE
     Route: 041
  5. FENTANYL. [Concomitant]
     Active Substance: FENTANYL
     Dosage: 2400 UG, QD
     Route: 041

REACTIONS (4)
  - Altered state of consciousness [Recovering/Resolving]
  - Cancer pain [Recovering/Resolving]
  - Delirium [Recovering/Resolving]
  - Anxiety [Recovering/Resolving]
